FAERS Safety Report 5845326-X (Version None)
Quarter: 2008Q3

REPORT INFORMATION
  Report Type: 
  Country: None (occurrence: None)
  Receive Date: 20080814
  Receipt Date: 20080808
  Transmission Date: 20090109
  Serious: Yes (Hospitalization)
  Sender: FDA-Public Use
  Company Number: JP-AVENTIS-200816794GDDC

PATIENT
  Age: 76 Year
  Sex: Male

DRUGS (14)
  1. RIFADIN [Suspect]
     Indication: PULMONARY TUBERCULOSIS
     Route: 048
     Dates: start: 20080306
  2. ISONIAZID [Suspect]
     Indication: PULMONARY TUBERCULOSIS
     Route: 048
     Dates: start: 20080306
  3. EBUTOL                             /00022301/ [Suspect]
     Indication: PULMONARY TUBERCULOSIS
     Route: 048
     Dates: start: 20080612
  4. LOXONIN                            /00890701/ [Suspect]
     Dates: start: 20080521
  5. LOXONIN                            /00890701/ [Suspect]
     Dates: start: 20080609, end: 20080623
  6. MUCOSTA [Concomitant]
     Route: 048
  7. PYDOXAL [Concomitant]
     Indication: PULMONARY TUBERCULOSIS
     Route: 048
     Dates: start: 20080306
  8. GASTROM [Concomitant]
     Indication: PULMONARY TUBERCULOSIS
     Route: 048
     Dates: start: 20080306
  9. APRICOT KERNEL WATER [Concomitant]
     Indication: PULMONARY TUBERCULOSIS
     Route: 048
     Dates: start: 20080306
  10. SIMPLE SYRUP [Concomitant]
     Indication: PULMONARY TUBERCULOSIS
     Route: 048
     Dates: start: 20080306
  11. OPIUM ALKALOIDS AND DERIVATIVES [Concomitant]
     Indication: PULMONARY TUBERCULOSIS
     Route: 048
     Dates: start: 20080306
  12. BROCIN                             /01650902/ [Concomitant]
     Indication: PULMONARY TUBERCULOSIS
     Route: 048
     Dates: start: 20080306
  13. NOVORAPID [Concomitant]
     Indication: DIABETES MELLITUS
     Route: 058
     Dates: start: 20080306
  14. NOVORAPID [Concomitant]
     Route: 058
     Dates: start: 20080425

REACTIONS (1)
  - INTERSTITIAL LUNG DISEASE [None]
